FAERS Safety Report 8802705 (Version 1)
Quarter: 2012Q4

REPORT INFORMATION
  Report Type: 
  Country: US (occurrence: US)
  Receive Date: 20120921
  Receipt Date: 20120921
  Transmission Date: 20130627
  Serious: Yes (Death)
  Sender: FDA-Public Use
  Company Number: US-ELI_LILLY_AND_COMPANY-US201209004957

PATIENT
  Sex: Male

DRUGS (1)
  1. GEMZAR [Suspect]
     Indication: MESOTHELIOMA
     Dosage: UNK
     Dates: start: 201203, end: 20120627

REACTIONS (1)
  - Death [Fatal]
